FAERS Safety Report 11491530 (Version 3)
Quarter: 2015Q3

REPORT INFORMATION
  Report Type: Spontaneous
  Country: US (occurrence: US)
  Receive Date: 20150910
  Receipt Date: 20150925
  Transmission Date: 20151125
  Serious: Yes (Other)
  Sender: FDA-Public Use
  Company Number: US-ASTRAZENECA-2015SE86894

PATIENT
  Age: 57 Year
  Sex: Male

DRUGS (9)
  1. COREG [Concomitant]
     Active Substance: CARVEDILOL
  2. VIMOVO [Interacting]
     Active Substance: ESOMEPRAZOLE MAGNESIUM\NAPROXEN
     Indication: PAIN
     Dosage: 500/20 MG PER DAY
     Route: 048
     Dates: start: 20150619, end: 20150621
  3. PRILOSEC OTC [Suspect]
     Active Substance: OMEPRAZOLE MAGNESIUM
     Route: 048
  4. LOSARTAN POTASSIUM. [Concomitant]
     Active Substance: LOSARTAN POTASSIUM
  5. ACETYLSALICYLIC ACID [Concomitant]
     Active Substance: ASPIRIN
  6. VIMOVO [Interacting]
     Active Substance: ESOMEPRAZOLE MAGNESIUM\NAPROXEN
     Indication: ARTHRALGIA
     Dosage: 500/20 MG PER DAY
     Route: 048
     Dates: start: 20150619, end: 20150621
  7. DOXYCYCLINE. [Interacting]
     Active Substance: DOXYCYCLINE
     Indication: SURGERY
     Route: 065
  8. NORVASC [Concomitant]
     Active Substance: AMLODIPINE BESYLATE
  9. MORPHINE [Concomitant]
     Active Substance: MORPHINE

REACTIONS (6)
  - Dizziness [Not Recovered/Not Resolved]
  - Drug interaction [Unknown]
  - Gastritis [Not Recovered/Not Resolved]
  - Abdominal pain upper [Not Recovered/Not Resolved]
  - Weight decreased [Unknown]
  - Drug dose omission [Unknown]
